FAERS Safety Report 10202503 (Version 2)
Quarter: 2014Q2

REPORT INFORMATION
  Report Type: Spontaneous
  Country: US (occurrence: US)
  Receive Date: 20140528
  Receipt Date: 20140605
  Transmission Date: 20141212
  Serious: Yes (Other)
  Sender: FDA-Public Use
  Company Number: US-LUNDBECK-DKLU1099632

PATIENT
  Sex: Male

DRUGS (7)
  1. SABRIL (FOR ORAL SOLUTION) [Suspect]
     Indication: INFANTILE SPASMS
     Dates: start: 20100527
  2. SABRIL (FOR ORAL SOLUTION) [Suspect]
  3. KEPPRA [Concomitant]
     Indication: CONVULSION
  4. CLONAZEPAM [Concomitant]
     Indication: PRODUCT USED FOR UNKNOWN INDICATION
  5. CLONAZEPAM [Concomitant]
  6. CLONAZEPAM [Concomitant]
  7. TOPAMAX [Concomitant]
     Indication: CONVULSION

REACTIONS (1)
  - Platelet count decreased [Not Recovered/Not Resolved]
